FAERS Safety Report 15826185 (Version 1)
Quarter: 2019Q1

REPORT INFORMATION
  Report Type: Spontaneous
  Country: US (occurrence: US)
  Receive Date: 20190115
  Receipt Date: 20190115
  Transmission Date: 20190417
  Serious: Yes (Other)
  Sender: FDA-Public Use
  Company Number: US-PFIZER INC-2018532050

PATIENT
  Age: 65 Year
  Sex: Female
  Weight: 81.63 kg

DRUGS (9)
  1. LYRICA [Suspect]
     Active Substance: PREGABALIN
     Indication: NEUROPATHY PERIPHERAL
     Dosage: 300 MG, 2X/DAY(ONCE IN THE MORNING ONCE AT NIGHT)
     Route: 048
  2. MONTELUKAST [Concomitant]
     Active Substance: MONTELUKAST SODIUM
     Dosage: 10 MG, 1X/DAY
  3. LASIX [Concomitant]
     Active Substance: FUROSEMIDE
     Dosage: 1 DF, 1X/DAY
  4. MAGNESIUM [Concomitant]
     Active Substance: MAGNESIUM
     Dosage: 3 DF, DAILY (3 TABLETS EVERY DAY)
  5. LOSARTAN. [Concomitant]
     Active Substance: LOSARTAN
     Dosage: 50 MG, 1X/DAY
  6. ATORVASTATIN [Concomitant]
     Active Substance: ATORVASTATIN
     Dosage: 20 MG, 1X/DAY(ONCE A DAY)
  7. SERTRALINE [Concomitant]
     Active Substance: SERTRALINE HYDROCHLORIDE
     Dosage: 100 MG, 1X/DAY
  8. DEXIVANT [Concomitant]
     Dosage: 60 MG, 1X/DAY
  9. FLUTICASONE. [Concomitant]
     Active Substance: FLUTICASONE
     Dosage: UNK, 1X/DAY (NASAL SPRAY, ONCE A DAY)
     Route: 045

REACTIONS (6)
  - Expired product administered [Unknown]
  - Cough [Unknown]
  - Hypoparathyroidism [Unknown]
  - Drug ineffective [Unknown]
  - White blood cell count increased [Unknown]
  - Product dose omission [Unknown]
